FAERS Safety Report 13648981 (Version 2)
Quarter: 2017Q3

REPORT INFORMATION
  Report Type: Spontaneous
  Country: US (occurrence: US)
  Receive Date: 20170613
  Receipt Date: 20170911
  Transmission Date: 20171127
  Serious: No
  Sender: FDA-Public Use
  Company Number: US-ACTELION-A-US2017-155202

PATIENT
  Age: 78 Year
  Sex: Female

DRUGS (9)
  1. AMOXICILLIN. [Concomitant]
     Active Substance: AMOXICILLIN
  2. ALENDRONATE SODIUM. [Concomitant]
     Active Substance: ALENDRONATE SODIUM
  3. ALLOPURINOL. [Concomitant]
     Active Substance: ALLOPURINOL
  4. TRAVATAN Z [Concomitant]
     Active Substance: TRAVOPROST
  5. TIMOLOL MALEATE. [Concomitant]
     Active Substance: TIMOLOL MALEATE
  6. VITAMIN D [Concomitant]
     Active Substance: CHOLECALCIFEROL
  7. TRACLEER [Suspect]
     Active Substance: BOSENTAN
     Indication: PULMONARY ARTERIAL HYPERTENSION
     Dosage: 125 MG, BID
     Route: 048
     Dates: start: 20170412, end: 20170905
  8. ARANESP [Concomitant]
     Active Substance: DARBEPOETIN ALFA
     Dosage: 100 MG, UNK
  9. ATORVASTATIN CALCIUM. [Concomitant]
     Active Substance: ATORVASTATIN CALCIUM

REACTIONS (8)
  - Swelling [Unknown]
  - Chest pain [Unknown]
  - Abdominal distension [Unknown]
  - Cardiac disorder [Unknown]
  - Diarrhoea [Unknown]
  - Unevaluable event [Unknown]
  - Heart rate irregular [Unknown]
  - Anaemia [Unknown]
